FAERS Safety Report 4564269-5 (Version None)
Quarter: 2005Q1

REPORT INFORMATION
  Report Type: 
  Country: None (occurrence: None)
  Receive Date: 20050128
  Receipt Date: 20041207
  Transmission Date: 20050727
  Serious: Yes (Life-Threatening, Hospitalization, Disabling)
  Sender: FDA-Public Use
  Company Number: US-MERCK-0412USA00936

PATIENT
  Age: 56 Year
  Sex: Female
  Weight: 110 kg

DRUGS (10)
  1. VIOXX [Suspect]
     Indication: PAIN MANAGEMENT
     Route: 048
     Dates: start: 20020101
  2. VIOXX [Suspect]
     Route: 048
     Dates: start: 20040716, end: 20041001
  3. VIOXX [Suspect]
     Indication: SURGERY
     Route: 048
     Dates: start: 20020101
  4. VIOXX [Suspect]
     Route: 048
     Dates: start: 20040716, end: 20041001
  5. DILTIAZEM HYDROCHLORIDE [Concomitant]
     Route: 065
  6. LISINOPRIL [Concomitant]
     Route: 048
  7. ATENOLOL [Concomitant]
     Route: 065
  8. PAXIL [Concomitant]
     Route: 065
  9. AMBIEN [Concomitant]
     Route: 065
  10. LORAZEPAM [Concomitant]
     Route: 065

REACTIONS (21)
  - ACARODERMATITIS [None]
  - ACCIDENTAL OVERDOSE [None]
  - ADVERSE DRUG REACTION [None]
  - ANGINA PECTORIS [None]
  - BLADDER PAIN [None]
  - BRADYCARDIA [None]
  - CARDIAC ARREST [None]
  - DEHYDRATION [None]
  - DIZZINESS POSTURAL [None]
  - DYSPEPSIA [None]
  - FOOT FRACTURE [None]
  - HEART RATE DECREASED [None]
  - HYPOTENSION [None]
  - INSOMNIA [None]
  - LIVER FUNCTION TEST ABNORMAL [None]
  - MIGRAINE [None]
  - SKIN DISORDER [None]
  - SKIN IRRITATION [None]
  - STAPHYLOCOCCAL INFECTION [None]
  - TENSION HEADACHE [None]
  - TINEA PEDIS [None]
